FAERS Safety Report 9222300 (Version 1)
Quarter: 2013Q2

REPORT INFORMATION
  Report Type: Spontaneous
  Country: FR (occurrence: FR)
  Receive Date: 20130410
  Receipt Date: 20130410
  Transmission Date: 20140414
  Serious: Yes (Hospitalization)
  Sender: FDA-Public Use
  Company Number: FR-MYLANLABS-2013S1007150

PATIENT
  Age: 8 Month
  Sex: Male

DRUGS (1)
  1. FENTANYL TRANSDERMAL SYSTEM [Suspect]
     Indication: ACCIDENTAL POISONING
     Dosage: 25 MICROG/H
     Route: 048

REACTIONS (9)
  - Accidental poisoning [Recovered/Resolved]
  - Unresponsive to stimuli [Recovered/Resolved]
  - Miosis [Recovered/Resolved]
  - Hypoventilation [Recovered/Resolved]
  - Hypoxia [Recovered/Resolved]
  - Somnolence [Recovered/Resolved]
  - Muscle contracture [Recovered/Resolved]
  - Hypertonia [Recovered/Resolved]
  - Accidental exposure to product by child [Recovered/Resolved]
